FAERS Safety Report 18533516 (Version 1)
Quarter: 2020Q4

REPORT INFORMATION
  Report Type: Spontaneous
  Country: US (occurrence: US)
  Receive Date: 20201121
  Receipt Date: 20201121
  Transmission Date: 20210114
  Serious: No
  Sender: FDA-Public Use
  Company Number: None

PATIENT
  Age: 50 Year
  Sex: Female
  Weight: 103.5 kg

DRUGS (1)
  1. BUTRANS [Suspect]
     Active Substance: BUPRENORPHINE
     Indication: PAIN
     Dosage: ?          QUANTITY:1 PATCH(ES);OTHER FREQUENCY:7 DAYS;?
     Route: 062
     Dates: start: 20190101, end: 20200101

REACTIONS (5)
  - Somnolence [None]
  - Impaired driving ability [None]
  - Sleep-related eating disorder [None]
  - Application site discharge [None]
  - Application site wound [None]

NARRATIVE: CASE EVENT DATE: 20200701
